FAERS Safety Report 9256961 (Version 3)
Quarter: 2014Q1

REPORT INFORMATION
  Report Type: Spontaneous
  Country: US (occurrence: US)
  Receive Date: 20130426
  Receipt Date: 20140102
  Transmission Date: 20141002
  Serious: Yes (Death, Hospitalization, Other)
  Sender: FDA-Public Use
  Company Number: US-ASTRAZENECA-2013SE27348

PATIENT
  Age: 63 Year
  Sex: Male
  Weight: 133.8 kg

DRUGS (26)
  1. NEXIUM [Suspect]
     Route: 048
  2. NEXIUM [Suspect]
     Route: 048
     Dates: start: 20061213
  3. NEXIUM [Suspect]
     Route: 048
     Dates: start: 20070501
  4. PRILOSEC [Suspect]
     Route: 048
  5. PRILOSEC [Suspect]
     Route: 048
     Dates: start: 20041206
  6. PROTONIX [Concomitant]
  7. PREVACID [Concomitant]
  8. TUMS [Concomitant]
  9. ALKA-SELTZER [Concomitant]
  10. GAVISCON [Concomitant]
  11. ROLAIDS [Concomitant]
  12. MYLANTA [Concomitant]
  13. FUROSEMIDE [Concomitant]
     Dates: start: 20041206
  14. ENALAPRIL [Concomitant]
     Dates: start: 20040923
  15. RANITIDINE HCL [Concomitant]
     Dates: start: 20040923
  16. LEXAPRO [Concomitant]
     Dates: start: 20040923
  17. LEXAPRO [Concomitant]
     Dates: start: 20041116
  18. FOSAMAX [Concomitant]
  19. PREDNISONE [Concomitant]
     Dates: start: 20070501
  20. SPIRONOLACTONE [Concomitant]
     Dates: start: 20040924
  21. SPIRONOLACTONE [Concomitant]
     Dates: start: 20041206
  22. CARISOPRODOL [Concomitant]
     Dates: start: 20041013
  23. BUMETANIDE [Concomitant]
  24. ZAROXOLYN [Concomitant]
     Dates: start: 20041021
  25. KLOR-CON [Concomitant]
     Dates: start: 20061213
  26. TORSEMIDE [Concomitant]
     Dates: start: 20061213

REACTIONS (15)
  - Multi-organ failure [Fatal]
  - Sepsis [Fatal]
  - Femur fracture [Unknown]
  - Hip fracture [Unknown]
  - Musculoskeletal discomfort [Unknown]
  - Osteoporosis [Unknown]
  - Bone disorder [Unknown]
  - Arthritis [Unknown]
  - Calcium deficiency [Unknown]
  - Diabetes mellitus [Unknown]
  - Vitamin D deficiency [Unknown]
  - Clavicle fracture [Unknown]
  - Lower limb fracture [Unknown]
  - Liver disorder [Unknown]
  - Depression [Unknown]
